FAERS Safety Report 13067912 (Version 1)
Quarter: 2016Q4

REPORT INFORMATION
  Report Type: Report from Study
  Country: AU (occurrence: AU)
  Receive Date: 20161228
  Receipt Date: 20161228
  Transmission Date: 20170207
  Serious: Yes (Other)
  Sender: FDA-Public Use
  Company Number: AU-BAYER-2016-181332

PATIENT
  Age: 55 Year
  Sex: Female

DRUGS (4)
  1. RIOCIGUAT [Suspect]
     Active Substance: RIOCIGUAT
     Indication: PULMONARY HYPERTENSION
     Dosage: 2 MG, TID
     Route: 048
     Dates: start: 20161216
  2. RIOCIGUAT [Suspect]
     Active Substance: RIOCIGUAT
     Indication: PULMONARY HYPERTENSION
     Dosage: 0.5 MG, TID
     Route: 048
     Dates: start: 20160915, end: 20161014
  3. RIOCIGUAT [Suspect]
     Active Substance: RIOCIGUAT
     Indication: PULMONARY HYPERTENSION
     Dosage: 1.5 MG, TID
     Route: 048
     Dates: start: 20161118, end: 20161216
  4. RIOCIGUAT [Suspect]
     Active Substance: RIOCIGUAT
     Indication: PULMONARY HYPERTENSION
     Dosage: 1 MG, TID
     Route: 048
     Dates: start: 20161014, end: 20161118

REACTIONS (18)
  - Insomnia [None]
  - Malaise [None]
  - Dyspnoea [None]
  - Pain of skin [None]
  - Blood pressure decreased [None]
  - Dizziness [Recovered/Resolved]
  - Skin tightness [None]
  - Gait disturbance [Recovered/Resolved]
  - Nausea [Recovered/Resolved]
  - Abdominal pain upper [Recovered/Resolved]
  - Contusion [None]
  - Fluid retention [None]
  - Bite [None]
  - Peripheral swelling [Unknown]
  - Joint swelling [Unknown]
  - Abdominal distension [Recovered/Resolved]
  - Headache [Recovered/Resolved]
  - Oedema peripheral [None]
